FAERS Safety Report 15550930 (Version 2)
Quarter: 2018Q4

REPORT INFORMATION
  Report Type: Spontaneous
  Country: AU (occurrence: AU)
  Receive Date: 20181025
  Receipt Date: 20181218
  Transmission Date: 20190205
  Serious: Yes (Hospitalization)
  Sender: FDA-Public Use
  Company Number: AU-BAYER-2018-194648

PATIENT
  Age: 66 Year
  Sex: Male

DRUGS (7)
  1. ACETYLSALICYLIC ACID({=100 MG) [Suspect]
     Active Substance: ASPIRIN
     Dosage: 3 TABLETS OF EFFERVESCENT TABLETS OVER 2 DAYS
     Dates: start: 2017
  2. ACETYLSALICYLIC ACID({=100 MG) [Suspect]
     Active Substance: ASPIRIN
     Dosage: 1 UNK
  3. LAMIVUDINE. [Concomitant]
     Active Substance: LAMIVUDINE
     Dosage: UNK
  4. ABACAVIR. [Concomitant]
     Active Substance: ABACAVIR
     Indication: HEADACHE
     Dosage: UNK
  5. NEVIRAPINE. [Concomitant]
     Active Substance: NEVIRAPINE
     Dosage: UNK
  6. RITUXIMAB. [Concomitant]
     Active Substance: RITUXIMAB
     Dosage: UNK, OW
  7. VALGANCICLOVIR. [Concomitant]
     Active Substance: VALGANCICLOVIR

REACTIONS (3)
  - Stevens-Johnson syndrome [Recovered/Resolved]
  - Toxic epidermal necrolysis [Recovered/Resolved]
  - Expired product administered [None]

NARRATIVE: CASE EVENT DATE: 20170509
